FAERS Safety Report 7621147-2 (Version None)
Quarter: 2011Q3

REPORT INFORMATION
  Report Type: 
  Country: None (occurrence: None)
  Receive Date: 20110719
  Receipt Date: 20110714
  Transmission Date: 20111222
  Serious: Yes (Death, Other)
  Sender: FDA-Public Use
  Company Number: PHHY2011BR63720

PATIENT
  Sex: Female

DRUGS (6)
  1. DIOVAN HCT [Suspect]
     Dosage: 160 MG VALS AND 12.5 MG HYDR
  2. DIOVAN [Suspect]
     Dosage: 80 MG, UNK
  3. DIOVAN HCT [Suspect]
     Dosage: 320 MG VALS AND 25 MG HYDR
  4. DIOVAN HCT [Suspect]
     Dosage: 320 MG VALS AND 12.5 MG HYDR
  5. DIOVAN [Suspect]
     Dosage: 320 MG, UNK
  6. ENABLEX [Suspect]
     Dosage: 7.5 MG, UNK

REACTIONS (2)
  - DEATH [None]
  - INFARCTION [None]
